FAERS Safety Report 5235837-2 (Version None)
Quarter: 2007Q1

REPORT INFORMATION
  Report Type: 
  Country: None (occurrence: None)
  Receive Date: 20070212
  Receipt Date: 20070208
  Transmission Date: 20070707
  Serious: Yes (Hospitalization)
  Sender: FDA-Public Use
  Company Number: 2006UW19328

PATIENT
  Age: 71 Year
  Sex: Male
  Weight: 129.1 kg

DRUGS (10)
  1. IRESSA [Suspect]
     Indication: METASTATIC RENAL CELL CARCINOMA
     Route: 048
     Dates: start: 20060808, end: 20060921
  2. IRESSA [Suspect]
     Route: 048
     Dates: start: 20060928
  3. SUNITINIB MALATE [Suspect]
     Indication: METASTATIC RENAL CELL CARCINOMA
     Route: 048
     Dates: start: 20060808, end: 20060905
  4. SUNITINIB MALATE [Suspect]
     Dosage: CYCLE TWO
     Route: 048
     Dates: start: 20060919, end: 20060921
  5. SUNITINIB MALATE [Suspect]
     Route: 048
     Dates: start: 20060928
  6. IMDUR [Concomitant]
     Route: 048
     Dates: start: 19990126, end: 20060922
  7. ATIVAN [Concomitant]
     Indication: ANXIETY
     Route: 048
     Dates: start: 19980101
  8. LOPRESSOR [Concomitant]
     Route: 048
     Dates: start: 19990126
  9. MICARDIS [Concomitant]
     Route: 048
     Dates: start: 20051227
  10. LOPERAMIDE HYDROCHLORIDE [Concomitant]
     Route: 048
     Dates: start: 20060815

REACTIONS (5)
  - BARRETT'S OESOPHAGUS [None]
  - DIARRHOEA [None]
  - GASTROINTESTINAL HAEMORRHAGE [None]
  - PETECHIAE [None]
  - POLYP [None]
